FAERS Safety Report 22640414 (Version 1)
Quarter: 2023Q2

REPORT INFORMATION
  Report Type: Spontaneous
  Country: US (occurrence: None)
  Receive Date: 20230623
  Receipt Date: 20230623
  Transmission Date: 20230721
  Serious: Yes (Death)
  Sender: FDA-Public Use
  Company Number: None

PATIENT
  Age: 75 Year
  Sex: Male

DRUGS (1)
  1. OCTREOTIDE ACETATE [Suspect]
     Active Substance: OCTREOTIDE ACETATE
     Dosage: 1 ML (100MCG TOTAL) SQ TID?
     Route: 058

REACTIONS (2)
  - Myelodysplastic syndrome [None]
  - Vomiting [None]

NARRATIVE: CASE EVENT DATE: 20230517
